FAERS Safety Report 8721567 (Version 3)
Quarter: 2013Q1

REPORT INFORMATION
  Report Type: Spontaneous
  Country: US (occurrence: US)
  Receive Date: 20120814
  Receipt Date: 20130328
  Transmission Date: 20140127
  Serious: Yes (Other)
  Sender: FDA-Public Use
  Company Number: US-BIOGENIDEC-2012BI030016

PATIENT
  Age: 48 Year
  Sex: Female

DRUGS (5)
  1. TYSABRI [Suspect]
     Indication: MULTIPLE SCLEROSIS
     Route: 042
  2. TYSABRI [Suspect]
     Indication: MULTIPLE SCLEROSIS
     Route: 042
     Dates: start: 20120706, end: 20120803
  3. AMPYRA [Concomitant]
  4. GABAPENTIN [Concomitant]
  5. PROZAC [Concomitant]

REACTIONS (2)
  - Anaphylactoid reaction [Recovered/Resolved]
  - Pruritus generalised [Recovered/Resolved]
